FAERS Safety Report 9245048 (Version 1)
Quarter: 2013Q2

REPORT INFORMATION
  Report Type: Spontaneous
  Country: FR (occurrence: FR)
  Receive Date: 20130422
  Receipt Date: 20130422
  Transmission Date: 20140414
  Serious: Yes (Hospitalization)
  Sender: FDA-Public Use
  Company Number: FR-SANOFI-AVENTIS-2013SA039019

PATIENT
  Age: 93 Year
  Sex: Female

DRUGS (9)
  1. LASILIX FAIBLE [Suspect]
     Indication: HYPERTENSION
     Route: 048
     Dates: end: 20120507
  2. APROVEL [Suspect]
     Indication: HYPERTENSION
     Route: 048
     Dates: end: 20120507
  3. LEVOTHYROX [Concomitant]
     Indication: HYPOTHYROIDISM
     Route: 048
  4. PREVISCAN [Concomitant]
     Route: 048
  5. TRANSIPEG [Concomitant]
     Dosage: DOSE:1 UNIT(S)
     Route: 048
  6. DISCOTRINE [Concomitant]
     Dosage: ROUTE: TRANSDERMIC
     Route: 062
     Dates: end: 20120507
  7. DUROGESIC [Concomitant]
     Dosage: ROUTE: TRANSDERMIC DOSE:0.333 UNIT(S)
     Route: 062
     Dates: end: 20120507
  8. HEMIGOXINE NATIVELLE [Concomitant]
     Dosage: DOSE:1 UNIT(S)
     Route: 048
     Dates: end: 20120507
  9. LANTUS [Concomitant]
     Indication: DIABETES MELLITUS
     Route: 058
     Dates: end: 20120507

REACTIONS (5)
  - Hypernatraemia [Recovered/Resolved]
  - Blood creatinine increased [Recovered/Resolved]
  - Blood urea increased [Recovered/Resolved]
  - Hypotension [None]
  - Hypovolaemia [None]
